FAERS Safety Report 10734090 (Version 1)
Quarter: 2015Q1

REPORT INFORMATION
  Report Type: Report from Study
  Country: US (occurrence: US)
  Receive Date: 20150123
  Receipt Date: 20150123
  Transmission Date: 20150721
  Serious: Yes (Life-Threatening, Other)
  Sender: FDA-Public Use
  Company Number: US-GILEAD-2015-0132824

PATIENT
  Age: 76 Year
  Sex: Male

DRUGS (2)
  1. IDELALISIB [Suspect]
     Active Substance: IDELALISIB
     Indication: LYMPHOMA
     Dosage: 150 MG, UNK
     Route: 048
     Dates: start: 20140828
  2. IDELALISIB [Suspect]
     Active Substance: IDELALISIB
     Indication: PANCYTOPENIA

REACTIONS (1)
  - Terminal state [Unknown]
